FAERS Safety Report 16117943 (Version 1)
Quarter: 2019Q1

REPORT INFORMATION
  Report Type: Spontaneous
  Country: US (occurrence: US)
  Receive Date: 20190326
  Receipt Date: 20190326
  Transmission Date: 20190418
  Serious: Yes (Hospitalization, Disabling)
  Sender: FDA-Public Use
  Company Number: US-JNJFOC-20190329330

PATIENT
  Age: 70 Year
  Sex: Male

DRUGS (1)
  1. INVOKANA [Suspect]
     Active Substance: CANAGLIFLOZIN
     Indication: PRODUCT USED FOR UNKNOWN INDICATION
     Route: 048

REACTIONS (8)
  - Cellulitis [Recovering/Resolving]
  - Peripheral ischaemia [Recovering/Resolving]
  - Diabetic foot [Recovering/Resolving]
  - Sepsis [Recovering/Resolving]
  - Osteomyelitis [Recovering/Resolving]
  - Limb amputation [Unknown]
  - Gangrene [Recovering/Resolving]
  - Ischaemic skin ulcer [Unknown]

NARRATIVE: CASE EVENT DATE: 20160411
